FAERS Safety Report 4696883-0 (Version None)
Quarter: 2005Q2

REPORT INFORMATION
  Report Type: 
  Country: None (occurrence: None)
  Receive Date: 20050620
  Receipt Date: 20050601
  Transmission Date: 20051028
  Serious: Yes (Hospitalization)
  Sender: FDA-Public Use
  Company Number: 2005PL000047

PATIENT
  Age: 28 Year
  Sex: Female
  Weight: 55.6 kg

DRUGS (5)
  1. AZATHIOPRINE [Suspect]
     Indication: CROHN'S DISEASE
     Dosage: 50 MG; QD; PO
     Route: 048
     Dates: start: 20040903, end: 20050220
  2. REMICADE [Suspect]
     Dosage: 5 MG/KG; IV
     Route: 042
     Dates: start: 20050128
  3. MESALAMINE [Concomitant]
  4. BIOFERMIN [Concomitant]
  5. LOPEMIN [Concomitant]

REACTIONS (3)
  - DRUG INTERACTION [None]
  - PHARYNGOLARYNGEAL PAIN [None]
  - PNEUMONIA [None]
